APPROVED DRUG PRODUCT: ESTRADIOL
Active Ingredient: ESTRADIOL
Strength: 0.01%
Dosage Form/Route: CREAM;VAGINAL
Application: A208788 | Product #001 | TE Code: AB
Applicant: MYLAN PHARMACEUTICALS INC
Approved: Dec 29, 2017 | RLD: No | RS: No | Type: RX